FAERS Safety Report 16150292 (Version 2)
Quarter: 2019Q2

REPORT INFORMATION
  Report Type: Spontaneous
  Country: NZ (occurrence: NZ)
  Receive Date: 20190403
  Receipt Date: 20190506
  Transmission Date: 20190711
  Serious: Yes (Other)
  Sender: FDA-Public Use
  Company Number: NZ-APOTEX-2019AP010580

PATIENT
  Sex: Male

DRUGS (1)
  1. APO-GABAPENTIN [Suspect]
     Active Substance: GABAPENTIN
     Indication: PRODUCT USED FOR UNKNOWN INDICATION
     Dosage: UNK
     Route: 065

REACTIONS (11)
  - Withdrawal syndrome [Unknown]
  - Feeling cold [Unknown]
  - Product quality issue [Unknown]
  - Drug ineffective [Unknown]
  - Seizure [Unknown]
  - Product substitution issue [Unknown]
  - Hyperhidrosis [Unknown]
  - Condition aggravated [Unknown]
  - Ageusia [Unknown]
  - Fluid retention [Unknown]
  - Paraesthesia [Unknown]
